FAERS Safety Report 6219555-X (Version None)
Quarter: 2009Q2

REPORT INFORMATION
  Report Type: 
  Country: None (occurrence: None)
  Receive Date: 20090605
  Receipt Date: 20090528
  Transmission Date: 20091009
  Serious: Yes (Hospitalization)
  Sender: FDA-Public Use
  Company Number: FABR-1000826

PATIENT
  Age: 36 Year
  Sex: Male
  Weight: 63.5 kg

DRUGS (1)
  1. FABRAZYME [Suspect]
     Indication: FABRY'S DISEASE
     Dosage: 70 MG, QW, INTRAVENOUS
     Route: 042
     Dates: start: 20040501

REACTIONS (13)
  - AMNESIA [None]
  - BALANCE DISORDER [None]
  - BLOOD GLUCOSE DECREASED [None]
  - CEREBROVASCULAR ACCIDENT [None]
  - DEPRESSION [None]
  - DIABETIC KETOACIDOSIS [None]
  - HYPERGLYCAEMIA [None]
  - INCORRECT DOSE ADMINISTERED [None]
  - MENTAL STATUS CHANGES [None]
  - OVERDOSE [None]
  - SPEECH DISORDER [None]
  - SUICIDAL IDEATION [None]
  - TOBACCO USER [None]
